FAERS Safety Report 5523546-1 (Version None)
Quarter: 2007Q4

REPORT INFORMATION
  Report Type: 
  Country: None (occurrence: None)
  Receive Date: 20071116
  Receipt Date: 20071106
  Transmission Date: 20080405
  Serious: Yes (Life-Threatening)
  Sender: FDA-Public Use
  Company Number: GXKR2007DE09553

PATIENT
  Age: 24 Year
  Sex: Male

DRUGS (8)
  1. CYTARABINE [Suspect]
     Indication: ACUTE LYMPHOCYTIC LEUKAEMIA
  2. CYCLOSPORINE [Suspect]
     Indication: GRAFT VERSUS HOST DISEASE
  3. PURINE ANALOGUES(NO INGREDIENTS/SUBSTANCES) [Suspect]
     Indication: ACUTE LYMPHOCYTIC LEUKAEMIA
  4. FLUDARABINE(FLUDARABINE) UNKNOWN [Suspect]
     Indication: ACUTE LYMPHOCYTIC LEUKAEMIA
  5. AMSACRINE(AMSACRINE) UNKNOWN [Suspect]
     Indication: ACUTE LYMPHOCYTIC LEUKAEMIA
  6. CORTICOSTEROIDS(NO INGREDIENTS/SUBSTANCES) UNKNOWN [Suspect]
     Indication: GRAFT VERSUS HOST DISEASE
  7. BASILIXIMAB(BASILIXIMAB) UNKNOWN [Suspect]
     Indication: GRAFT VERSUS HOST DISEASE
  8. IMMUNOGLOBULINS (IMMUNOGLOBULINS) UNKNOWN [Concomitant]

REACTIONS (7)
  - ACUTE GRAFT VERSUS HOST DISEASE IN INTESTINE [None]
  - ACUTE GRAFT VERSUS HOST DISEASE IN SKIN [None]
  - BK VIRUS INFECTION [None]
  - COMPLICATIONS OF TRANSPLANT SURGERY [None]
  - CYSTITIS HAEMORRHAGIC [None]
  - DRUG TOXICITY [None]
  - HEPATOTOXICITY [None]
